FAERS Safety Report 10024074 (Version 3)
Quarter: 2014Q4

REPORT INFORMATION
  Report Type: Report from Study
  Country: BR (occurrence: BR)
  Receive Date: 20140320
  Receipt Date: 20141202
  Transmission Date: 20150528
  Serious: Yes (Other)
  Sender: FDA-Public Use
  Company Number: BR-ROCHE-789037

PATIENT
  Age: 53 Year
  Sex: Female
  Weight: 45 kg

DRUGS (15)
  1. GLIMEPIRIDE. [Concomitant]
     Active Substance: GLIMEPIRIDE
     Dosage: AFTER LUNCH
     Route: 065
  2. CALCORT [Concomitant]
     Active Substance: DEFLAZACORT
     Route: 065
  3. JANUVIA [Concomitant]
     Active Substance: SITAGLIPTIN PHOSPHATE
  4. ACTEMRA [Suspect]
     Active Substance: TOCILIZUMAB
     Indication: RHEUMATOID ARTHRITIS
     Dosage: TOTAL 9 INFUSIONS.
     Route: 042
     Dates: start: 20130308, end: 201401
  5. DEFLAZACORT [Concomitant]
     Active Substance: DEFLAZACORT
     Route: 065
  6. ARAVA [Concomitant]
     Active Substance: LEFLUNOMIDE
     Route: 065
  7. AMARYL [Concomitant]
     Active Substance: GLIMEPIRIDE
  8. PRED FORTE [Concomitant]
     Active Substance: PREDNISOLONE ACETATE
     Dosage: REPORTED AS PRED FORT
     Route: 065
  9. DEFLAZACORT [Concomitant]
     Active Substance: DEFLAZACORT
  10. TAMOXIFEN [Concomitant]
     Active Substance: TAMOXIFEN
     Route: 065
  11. MOVATEC [Concomitant]
     Active Substance: MELOXICAM
  12. PRANDIN [Concomitant]
     Active Substance: REPAGLINIDE
     Route: 065
  13. MELOXICAM. [Concomitant]
     Active Substance: MELOXICAM
     Dosage: AT NIGHT
     Route: 065
  14. GALVUS [Concomitant]
     Active Substance: VILDAGLIPTIN
  15. MABTHERA [Suspect]
     Active Substance: RITUXIMAB
     Indication: RHEUMATOID ARTHRITIS
     Dosage: DATE OF LAST DOSE: 12/APR/2012 FORM: INFUSION
     Route: 042
     Dates: start: 20100301, end: 20120417

REACTIONS (9)
  - Weight increased [Unknown]
  - Drug ineffective [Unknown]
  - Rash macular [Not Recovered/Not Resolved]
  - Retinal detachment [Recovered/Resolved]
  - Nasopharyngitis [Not Recovered/Not Resolved]
  - Erythema [Recovered/Resolved]
  - Rhinitis allergic [Unknown]
  - Weight decreased [Unknown]
  - Nausea [Recovered/Resolved]

NARRATIVE: CASE EVENT DATE: 20110630
